FAERS Safety Report 6103219-7 (Version None)
Quarter: 2009Q1

REPORT INFORMATION
  Report Type: 
  Country: None (occurrence: None)
  Receive Date: 20090305
  Receipt Date: 20090225
  Transmission Date: 20090719
  Serious: Yes (Other)
  Sender: FDA-Public Use
  Company Number: CA-JNJFOC-20090206352

PATIENT
  Sex: Female
  Weight: 65 kg

DRUGS (8)
  1. REMICADE [Suspect]
     Dosage: 7TH DOSE
     Route: 042
  2. REMICADE [Suspect]
     Dosage: INFUSION 6
     Route: 042
  3. REMICADE [Suspect]
     Dosage: INFUSIONS 2-5 ADMINISTERED ON UNKNOWN DATES
     Route: 042
  4. REMICADE [Suspect]
     Indication: CROHN'S DISEASE
     Route: 042
  5. BENADRYL [Concomitant]
     Indication: PREMEDICATION
     Route: 048
  6. SOLU-CORTEF [Concomitant]
     Route: 042
  7. SOLU-CORTEF [Concomitant]
     Indication: PREMEDICATION
     Route: 042
  8. AERIUS [Concomitant]
     Indication: PREMEDICATION

REACTIONS (7)
  - BLOOD PRESSURE INCREASED [None]
  - CHILLS [None]
  - HYPOKINESIA [None]
  - INFUSION RELATED REACTION [None]
  - MUSCULOSKELETAL STIFFNESS [None]
  - NECK PAIN [None]
  - PYREXIA [None]
